FAERS Safety Report 10057284 (Version 1)
Quarter: 2014Q2

REPORT INFORMATION
  Report Type: Spontaneous
  Country: US (occurrence: US)
  Receive Date: 20140403
  Receipt Date: 20140403
  Transmission Date: 20141212
  Serious: No
  Sender: FDA-Public Use
  Company Number: US-LUNDBECK-DKLU1098271

PATIENT
  Sex: Male

DRUGS (3)
  1. ONFI [Suspect]
     Indication: CONVULSION
     Route: 048
     Dates: start: 201311, end: 20140226
  2. ONFI [Suspect]
     Indication: LENNOX-GASTAUT SYNDROME
  3. DEPAKOTE [Concomitant]
     Indication: PRODUCT USED FOR UNKNOWN INDICATION

REACTIONS (2)
  - Somnolence [Unknown]
  - Drug ineffective [Unknown]
